FAERS Safety Report 6170509-1 (Version None)
Quarter: 2009Q2

REPORT INFORMATION
  Report Type: 
  Country: None (occurrence: None)
  Receive Date: 20090427
  Receipt Date: 20090427
  Transmission Date: 20091009
  Serious: Yes (Life-Threatening, Hospitalization)
  Sender: FDA-Public Use
  Company Number: None

PATIENT
  Age: 57 Year
  Sex: Male
  Weight: 99 kg

DRUGS (7)
  1. WARFARIN SODIUM [Suspect]
     Indication: AORTIC VALVE REPLACEMENT
     Dosage: 10 MG PO QD
     Route: 048
     Dates: start: 20090103
  2. WARFARIN SODIUM [Suspect]
     Indication: DEEP VEIN THROMBOSIS
     Dosage: 10 MG PO QD
     Route: 048
     Dates: start: 20090103
  3. CATAPRES [Concomitant]
  4. XANAX [Concomitant]
  5. SUSTIVA [Concomitant]
  6. EPZICOM [Concomitant]
  7. VATREX [Concomitant]

REACTIONS (4)
  - INTERNATIONAL NORMALISED RATIO INCREASED [None]
  - SKIN HAEMORRHAGE [None]
  - SUBCUTANEOUS ABSCESS [None]
  - WOUND INFECTION STAPHYLOCOCCAL [None]
